FAERS Safety Report 5495547-3 (Version None)
Quarter: 2007Q4

REPORT INFORMATION
  Report Type: 
  Country: None (occurrence: None)
  Receive Date: 20071015
  Receipt Date: 20061129
  Transmission Date: 20080405
  Serious: Yes (Hospitalization)
  Sender: FDA-Public Use
  Company Number: S06-USA-04993-01

PATIENT
  Age: 90 Year
  Sex: Female

DRUGS (3)
  1. LEXAPRO [Suspect]
     Indication: DEPRESSION
     Dates: start: 20050101, end: 20061122
  2. XANAX [Concomitant]
  3. ANTICOAGULANT [Concomitant]

REACTIONS (2)
  - FALL [None]
  - HIP FRACTURE [None]
